FAERS Safety Report 13939777 (Version 2)
Quarter: 2018Q2

REPORT INFORMATION
  Report Type: Spontaneous
  Country: US (occurrence: US)
  Receive Date: 20170906
  Receipt Date: 20180511
  Transmission Date: 20180711
  Serious: Yes (Death, Life-Threatening, Other)
  Sender: FDA-Public Use
  Company Number: US-HORMOSAN-2017-05061

PATIENT
  Age: 68 Year
  Sex: Female

DRUGS (4)
  1. NORTRIPTYLINE [Suspect]
     Active Substance: NORTRIPTYLINE
     Indication: PRODUCT USED FOR UNKNOWN INDICATION
     Dosage: UNK
     Route: 065
  2. ZOLPIDEM [Suspect]
     Active Substance: ZOLPIDEM\ZOLPIDEM TARTRATE
     Indication: PRODUCT USED FOR UNKNOWN INDICATION
     Dosage: UNK
     Route: 065
  3. DULOXETINE. [Suspect]
     Active Substance: DULOXETINE
     Indication: PRODUCT USED FOR UNKNOWN INDICATION
     Dosage: UNK
     Route: 065
  4. OXYCODONE [Suspect]
     Active Substance: OXYCODONE
     Indication: PRODUCT USED FOR UNKNOWN INDICATION
     Dosage: UNK
     Route: 065

REACTIONS (16)
  - Pancreatitis [Fatal]
  - Thrombocytopenia [Fatal]
  - Metabolic acidosis [Fatal]
  - Liver injury [Fatal]
  - Tachycardia [Fatal]
  - Delirium [Fatal]
  - Tremor [Fatal]
  - Hyperreflexia [Fatal]
  - Toxicity to various agents [Fatal]
  - Hypertension [Fatal]
  - Agitation [Fatal]
  - Acute kidney injury [Fatal]
  - Pneumonia aspiration [Fatal]
  - Respiratory depression [Fatal]
  - Rhabdomyolysis [Fatal]
  - Hypotension [Fatal]
